FAERS Safety Report 9133554 (Version 1)
Quarter: 2013Q1

REPORT INFORMATION
  Report Type: Spontaneous
  Country: US (occurrence: US)
  Receive Date: 20130124
  Receipt Date: 20130124
  Transmission Date: 20140127
  Serious: Yes (Hospitalization)
  Sender: FDA-Public Use
  Company Number: US-BRACCO-007791

PATIENT
  Age: 53 Year
  Sex: Male

DRUGS (2)
  1. MULTIHANCE [Suspect]
     Indication: SURGERY
     Route: 042
     Dates: start: 20120131, end: 20120131
  2. MULTIHANCE [Suspect]
     Indication: NUCLEAR MAGNETIC RESONANCE IMAGING BRAIN
     Route: 042
     Dates: start: 20120131, end: 20120131

REACTIONS (1)
  - Anaphylactic reaction [Recovered/Resolved]
